FAERS Safety Report 4685717-6 (Version None)
Quarter: 2005Q2

REPORT INFORMATION
  Report Type: 
  Country: None (occurrence: None)
  Receive Date: 20050608
  Receipt Date: 20050519
  Transmission Date: 20051028
  Serious: Yes (Life-Threatening)
  Sender: FDA-Public Use
  Company Number: 2005BL003300

PATIENT
  Age: 84 Year
  Sex: Female

DRUGS (3)
  1. ALBUTEROL SULFATE [Suspect]
     Indication: CHRONIC OBSTRUCTIVE AIRWAYS DISEASE EXACERBATED
     Dosage: 5 MILLIGRAMS; EVERY 2 HOURS; OROPHARYNGEAL
     Route: 049
  2. IPRATROPIUM BROMIDE [Concomitant]
  3. ALENDRONATE [Concomitant]

REACTIONS (6)
  - ACUTE MYOCARDIAL INFARCTION [None]
  - ATRIAL FIBRILLATION [None]
  - CHEST DISCOMFORT [None]
  - ELECTROCARDIOGRAM ST SEGMENT ELEVATION [None]
  - HYPOKINESIA [None]
  - MYOCARDIAL INFARCTION [None]
